FAERS Safety Report 4577933-9 (Version None)
Quarter: 2005Q1

REPORT INFORMATION
  Report Type: 
  Country: None (occurrence: None)
  Receive Date: 20050209
  Receipt Date: 20050124
  Transmission Date: 20050727
  Serious: No
  Sender: FDA-Public Use
  Company Number: 9997

PATIENT
  Age: 74 Year
  Sex: Male

DRUGS (2)
  1. FLUOROURACIL [Suspect]
  2. FOLINIC ACID [Suspect]

REACTIONS (7)
  - ARTHRITIS [None]
  - CHEST PAIN [None]
  - ELECTROCARDIOGRAM ST SEGMENT ELEVATION [None]
  - INFUSION RELATED REACTION [None]
  - LYMPHADENOPATHY [None]
  - RECTAL CANCER RECURRENT [None]
  - RECTOSIGMOID CANCER STAGE III [None]
